FAERS Safety Report 17960297 (Version 1)
Quarter: 2020Q2

REPORT INFORMATION
  Report Type: Spontaneous
  Country: GB (occurrence: GB)
  Receive Date: 20200630
  Receipt Date: 20200630
  Transmission Date: 20200714
  Serious: Yes (Hospitalization)
  Sender: FDA-Public Use
  Company Number: GB-TEVA-2020-GB-1792206

PATIENT
  Age: 58 Year
  Sex: Male
  Weight: 86 kg

DRUGS (3)
  1. BIMATOPROST. [Concomitant]
     Active Substance: BIMATOPROST
  2. GANFORT [Concomitant]
     Active Substance: BIMATOPROST\TIMOLOL
  3. ACETAZOLAMIDE. [Suspect]
     Active Substance: ACETAZOLAMIDE
     Indication: GLAUCOMA
     Dosage: 250MG
     Route: 048
     Dates: start: 20200520, end: 20200531

REACTIONS (11)
  - Paraesthesia oral [Recovered/Resolved]
  - Back pain [Recovered/Resolved]
  - Abdominal pain lower [Recovering/Resolving]
  - Nephrolithiasis [Recovering/Resolving]
  - Somnolence [Recovered/Resolved]
  - Thirst [Recovered/Resolved]
  - Dizziness [Recovering/Resolving]
  - Paraesthesia [Recovered/Resolved]
  - Libido decreased [Recovering/Resolving]
  - Asthenia [Recovering/Resolving]
  - Irritability [Recovered/Resolved]

NARRATIVE: CASE EVENT DATE: 20200521
